FAERS Safety Report 5262346-7 (Version None)
Quarter: 2007Q1

REPORT INFORMATION
  Report Type: 
  Country: None (occurrence: None)
  Receive Date: 20061208
  Receipt Date: 20060828
  Transmission Date: 20070707
  Serious: Yes (Death, Life-Threatening, Hospitalization)
  Sender: FDA-Public Use
  Company Number: USA-2006-0025102

PATIENT
  Age: 20 Year
  Sex: Male

DRUGS (2)
  1. OXYCONTIN [Suspect]
     Indication: DRUG ABUSER
  2. COCAINE (COCAINE) [Suspect]
     Indication: DRUG ABUSER

REACTIONS (2)
  - COMA [None]
  - SUBSTANCE ABUSE [None]
